FAERS Safety Report 8787758 (Version 2)
Quarter: 2015Q2

REPORT INFORMATION
  Report Type: Report from Study
  Country: US (occurrence: US)
  Receive Date: 20120914
  Receipt Date: 20150624
  Transmission Date: 20150821
  Serious: Yes (Death)
  Sender: FDA-Public Use
  Company Number: US-ROCHE-1123145

PATIENT
  Sex: Female

DRUGS (12)
  1. ACETAMINOPHEN. [Concomitant]
     Active Substance: ACETAMINOPHEN
     Route: 048
  2. GRANISETRON [Concomitant]
     Active Substance: GRANISETRON
     Route: 048
  3. LOPERAMIDE [Concomitant]
     Active Substance: LOPERAMIDE
     Indication: DIARRHOEA
     Dosage: 2MG Q2HR AND 4MG Q4HR AT NIGHT
     Route: 048
  4. AVASTIN [Suspect]
     Active Substance: BEVACIZUMAB
     Indication: BRAIN NEOPLASM MALIGNANT
     Route: 042
     Dates: start: 20050622
  5. DECADRON [Concomitant]
     Active Substance: DEXAMETHASONE
  6. DILANTIN [Concomitant]
     Active Substance: PHENYTOIN
  7. PHENOBARBITAL. [Concomitant]
     Active Substance: PHENOBARBITAL
  8. ATROPINE [Concomitant]
     Active Substance: ATROPINE
     Route: 042
  9. LOMUSTINE. [Concomitant]
     Active Substance: LOMUSTINE
     Route: 065
     Dates: start: 20060215
  10. ATROPINE [Concomitant]
     Active Substance: ATROPINE
     Route: 042
  11. IRINOTECAN [Concomitant]
     Active Substance: IRINOTECAN
     Route: 042
  12. PEPCID [Concomitant]
     Active Substance: FAMOTIDINE

REACTIONS (2)
  - Off label use [Unknown]
  - Death [Fatal]
